FAERS Safety Report 8590115-9 (Version None)
Quarter: 2012Q3

REPORT INFORMATION
  Report Type: 
  Country: None (occurrence: None)
  Receive Date: 20120813
  Receipt Date: 19900413
  Transmission Date: 20120928
  Serious: Yes (Hospitalization)
  Sender: FDA-Public Use
  Company Number: US-ROCHE-1099993

PATIENT
  Sex: Female

DRUGS (1)
  1. ACTIVASE [Suspect]
     Indication: MYOCARDIAL INFARCTION

REACTIONS (5)
  - BACK PAIN [None]
  - VENTRICULAR EXTRASYSTOLES [None]
  - HEADACHE [None]
  - SUPRAVENTRICULAR EXTRASYSTOLES [None]
  - SOMNOLENCE [None]
